FAERS Safety Report 7025237-7 (Version None)
Quarter: 2010Q4

REPORT INFORMATION
  Report Type: 
  Country: None (occurrence: None)
  Receive Date: 20101001
  Receipt Date: 20100927
  Transmission Date: 20110411
  Serious: Yes (Hospitalization)
  Sender: FDA-Public Use
  Company Number: US-TEVA-246641USA

PATIENT
  Sex: Female

DRUGS (1)
  1. COPAXONE [Suspect]
     Indication: MULTIPLE SCLEROSIS
     Route: 058

REACTIONS (6)
  - CHEST PAIN [None]
  - CHILLS [None]
  - HYPOAESTHESIA ORAL [None]
  - SWELLING FACE [None]
  - TREMOR [None]
  - VOMITING [None]
